FAERS Safety Report 17265240 (Version 3)
Quarter: 2020Q1

REPORT INFORMATION
  Report Type: Report from Study
  Country: None (occurrence: US)
  Receive Date: 20200114
  Receipt Date: 20200221
  Transmission Date: 20200409
  Serious: Yes (Other)
  Sender: FDA-Public Use
  Company Number: US-ABBVIE-20P-163-3220184-00

PATIENT
  Sex: Female

DRUGS (2)
  1. IMBRUVICA [Suspect]
     Active Substance: IBRUTINIB
     Indication: CHRONIC LYMPHOCYTIC LEUKAEMIA
     Route: 048
     Dates: start: 20191223
  2. IMBRUVICA [Suspect]
     Active Substance: IBRUTINIB
     Indication: CHRONIC LYMPHOCYTIC LEUKAEMIA
     Route: 048
     Dates: start: 20191224

REACTIONS (15)
  - Decreased appetite [Unknown]
  - Abnormal faeces [Unknown]
  - White blood cell count increased [Unknown]
  - Flatulence [Unknown]
  - Urinary tract infection [Unknown]
  - Dyspnoea [Unknown]
  - Hypotension [Unknown]
  - Haemoglobin decreased [Unknown]
  - Infusion site mass [Unknown]
  - Dry eye [Unknown]
  - Appetite disorder [Unknown]
  - Infusion site pain [Unknown]
  - Hypophagia [Unknown]
  - Nausea [Unknown]
  - Dry mouth [Unknown]
